FAERS Safety Report 24021803 (Version 1)
Quarter: 2024Q2

REPORT INFORMATION
  Report Type: Spontaneous
  Country: US (occurrence: US)
  Receive Date: 20240627
  Receipt Date: 20240627
  Transmission Date: 20240715
  Serious: No
  Sender: FDA-Public Use
  Company Number: US-ROCHE-3501278

PATIENT
  Sex: Male
  Weight: 79.38 kg

DRUGS (1)
  1. VABYSMO [Suspect]
     Active Substance: FARICIMAB\FARICIMAB-SVOA
     Indication: Eye haemorrhage
     Route: 050
     Dates: start: 20240124

REACTIONS (6)
  - Off label use [Unknown]
  - Photopsia [Not Recovered/Not Resolved]
  - Visual impairment [Recovered/Resolved]
  - Eye pain [Not Recovered/Not Resolved]
  - Headache [Recovered/Resolved]
  - Eye irritation [Not Recovered/Not Resolved]

NARRATIVE: CASE EVENT DATE: 20240124
